FAERS Safety Report 8246620-8 (Version None)
Quarter: 2012Q1

REPORT INFORMATION
  Report Type: 
  Country: None (occurrence: None)
  Receive Date: 20120330
  Receipt Date: 20120327
  Transmission Date: 20120608
  Serious: Yes (Other)
  Sender: FDA-Public Use
  Company Number: US-PFIZER INC-2012079175

PATIENT
  Sex: Male
  Weight: 90.703 kg

DRUGS (12)
  1. LOSARTAN [Concomitant]
     Dosage: 100 MG, 1X/DAY
  2. NIFEDIPINE [Concomitant]
     Dosage: 60 MG, 2X/DAY
  3. VIAGRA [Suspect]
     Indication: ERECTILE DYSFUNCTION
     Dosage: 100 MG, AS NEEDED
  4. SENSIPAR [Concomitant]
     Dosage: UNK
  5. ASPIRIN [Concomitant]
     Dosage: 81 MG, 1X/DAY
  6. CARVEDILOL [Concomitant]
     Dosage: 25 MG, 2X/DAY
  7. LASIX [Concomitant]
     Dosage: 40 MG, 1X/DAY
  8. AMBIEN [Concomitant]
     Indication: SLEEP DISORDER
     Dosage: 10 MG, 1X/DAY
  9. TAMSULOSIN HYDROCHLORIDE [Concomitant]
     Dosage: 40 MG, 1X/DAY
  10. ALPRAZOLAM [Concomitant]
     Indication: ANXIETY
     Dosage: 0.25 MG, 1X/DAY
  11. RENAL SOFTGELS [Concomitant]
     Dosage: UNK, DAILY
  12. FOSRENOL [Concomitant]
     Dosage: 1000 MG, 3X/DAY

REACTIONS (1)
  - RENAL DISORDER [None]
